FAERS Safety Report 9301511 (Version 1)
Quarter: 2013Q2

REPORT INFORMATION
  Report Type: Spontaneous
  Country: US (occurrence: None)
  Receive Date: 20130520
  Receipt Date: 20130520
  Transmission Date: 20140414
  Serious: Yes (Hospitalization)
  Sender: FDA-Public Use
  Company Number: None

PATIENT
  Age: 64 Year
  Sex: Male
  Weight: 77.7 kg

DRUGS (3)
  1. ACYCLOVIR [Suspect]
  2. METHOXAMINE [Suspect]
  3. FLUDARABINE [Suspect]

REACTIONS (3)
  - Pneumonia [None]
  - Diffuse large B-cell lymphoma [None]
  - Malignant transformation [None]
